FAERS Safety Report 19397507 (Version 1)
Quarter: 2021Q2

REPORT INFORMATION
  Report Type: Spontaneous
  Country: US (occurrence: US)
  Receive Date: 20210609
  Receipt Date: 20210609
  Transmission Date: 20210717
  Serious: Yes (Death, Other)
  Sender: FDA-Public Use
  Company Number: US-BRISTOL-MYERS SQUIBB COMPANY-BMS-2021-055577

PATIENT
  Age: 90 Year
  Sex: Male
  Weight: 45.99 kg

DRUGS (3)
  1. OPDIVO [Suspect]
     Active Substance: NIVOLUMAB
     Indication: PLEURAL MESOTHELIOMA
     Dosage: 360 MG FOR 1 CYCLE
     Route: 042
     Dates: start: 20201101
  2. OPDIVO [Suspect]
     Active Substance: NIVOLUMAB
     Dosage: 360 MILLIGRAM, Q3WK
     Route: 042
  3. YERVOY [Suspect]
     Active Substance: IPILIMUMAB
     Indication: PLEURAL MESOTHELIOMA
     Dosage: 1MG/KG   FOR 1 CYCLE
     Route: 042
     Dates: start: 20201101

REACTIONS (11)
  - Hepatic function abnormal [Unknown]
  - Decreased appetite [Unknown]
  - Hyponatraemia [Unknown]
  - Asthenia [Unknown]
  - Inappropriate antidiuretic hormone secretion [Unknown]
  - Fatigue [Unknown]
  - Musculoskeletal pain [Unknown]
  - Constipation [Unknown]
  - Cardiac arrest [Fatal]
  - Dyspnoea [Unknown]
  - Dysphagia [Unknown]

NARRATIVE: CASE EVENT DATE: 20210125
